FAERS Safety Report 15993054 (Version 9)
Quarter: 2021Q1

REPORT INFORMATION
  Report Type: Spontaneous
  Country: US (occurrence: US)
  Receive Date: 20190221
  Receipt Date: 20210222
  Transmission Date: 20210419
  Serious: Yes (Other)
  Sender: FDA-Public Use
  Company Number: US-PFIZER INC-2019074007

PATIENT
  Age: 89 Year
  Sex: Female

DRUGS (2)
  1. PREMPRO [Suspect]
     Active Substance: ESTROGENS, CONJUGATED\MEDROXYPROGESTERONE ACETATE
     Dosage: UNK (0.45 MG/1.5 MG)
  2. PREMPRO [Suspect]
     Active Substance: ESTROGENS, CONJUGATED\MEDROXYPROGESTERONE ACETATE
     Indication: OSTEOPOROSIS PROPHYLAXIS
     Dosage: 10 MG, 1X/DAY

REACTIONS (14)
  - Headache [Unknown]
  - Viral infection [Unknown]
  - Product prescribing error [Unknown]
  - Facial bones fracture [Unknown]
  - Fall [Unknown]
  - Gait disturbance [Unknown]
  - Loss of personal independence in daily activities [Unknown]
  - Epistaxis [Unknown]
  - Eye contusion [Unknown]
  - Cognitive disorder [Unknown]
  - Illness [Unknown]
  - Spinal stenosis [Unknown]
  - Confusional state [Unknown]
  - Aphonia [Unknown]
